FAERS Safety Report 16499894 (Version 1)
Quarter: 2019Q3

REPORT INFORMATION
  Report Type: Spontaneous
  Country: IT (occurrence: IT)
  Receive Date: 20190701
  Receipt Date: 20190701
  Transmission Date: 20191004
  Serious: Yes (Hospitalization)
  Sender: FDA-Public Use
  Company Number: IT-TEVA-2019-IT-1070970

PATIENT
  Age: 75 Year
  Sex: Female

DRUGS (8)
  1. LINAGLIPTIN [Concomitant]
     Active Substance: LINAGLIPTIN
  2. BISOPROLOL FUMARATE. [Suspect]
     Active Substance: BISOPROLOL FUMARATE
     Indication: CARDIAC FAILURE
     Route: 048
     Dates: start: 20150101, end: 20190531
  3. TORVAST [Concomitant]
     Active Substance: ATORVASTATIN
  4. FEBUXOSTAT. [Concomitant]
     Active Substance: FEBUXOSTAT
  5. FUROSEMIDE. [Suspect]
     Active Substance: FUROSEMIDE
     Indication: HYPERTENSION
     Route: 048
     Dates: start: 20150101, end: 20190531
  6. LEVOTHYROXINE. [Concomitant]
     Active Substance: LEVOTHYROXINE
  7. ENALAPRIL [Suspect]
     Active Substance: ENALAPRIL
     Indication: CARDIAC FAILURE
     Route: 048
     Dates: start: 20150101, end: 20190531
  8. METFORMIN [Concomitant]
     Active Substance: METFORMIN HYDROCHLORIDE

REACTIONS (3)
  - Vomiting [Recovering/Resolving]
  - Hyperkalaemia [Recovering/Resolving]
  - Atrioventricular block [Recovering/Resolving]

NARRATIVE: CASE EVENT DATE: 20190531
